FAERS Safety Report 7012634-9 (Version None)
Quarter: 2010Q3

REPORT INFORMATION
  Report Type: 
  Country: None (occurrence: None)
  Receive Date: 20100924
  Receipt Date: 20100922
  Transmission Date: 20110219
  Serious: Yes (Life-Threatening)
  Sender: FDA-Public Use
  Company Number: IT-ROCHE-683881

PATIENT
  Weight: 71.8 kg

DRUGS (9)
  1. METHOXY POLYETHYLENE GLYCOL-EPOETIN BETA [Suspect]
     Dosage: DOSAGE FORM: SYRINGE PERMANENTLY DISCONTINUED.LAST DOSE PRIOR TO SAE 13 JANUARY 2010.
     Route: 042
     Dates: start: 20090626, end: 20100205
  2. CALCIUM CARBONATE [Concomitant]
     Dosage: TDD:UG/DAY.
     Dates: start: 20091023
  3. AMLODIPINE [Concomitant]
     Dates: start: 20090102
  4. OXCARBAZEPINE [Concomitant]
     Dates: start: 20081103
  5. DELTACORTENE [Concomitant]
     Dates: start: 20061208
  6. OMEPRAZOLE [Concomitant]
     Dates: start: 20061208
  7. DOXAZOSIN MESYLATE [Concomitant]
     Dates: start: 20090303
  8. PAROXETINE HCL [Concomitant]
     Dates: start: 20070112
  9. LANTHANUM CARBONATE [Concomitant]
     Dates: start: 20091023

REACTIONS (1)
  - NECROSIS ISCHAEMIC [None]
